FAERS Safety Report 10181770 (Version 2)
Quarter: 2014Q2

REPORT INFORMATION
  Report Type: Spontaneous
  Country: US (occurrence: US)
  Receive Date: 20140519
  Receipt Date: 20140606
  Transmission Date: 20141212
  Serious: No
  Sender: FDA-Public Use
  Company Number: US-PFIZER INC-2014133802

PATIENT
  Age: 64 Year
  Sex: Male
  Weight: 95.24 kg

DRUGS (8)
  1. SERTRALINE HCL [Suspect]
     Indication: DEPRESSION
     Dosage: UNK
     Dates: start: 2013, end: 2013
  2. SERTRALINE HCL [Suspect]
     Dosage: 75 MG, DAILY
     Dates: start: 20131230
  3. NEURONTIN [Suspect]
     Indication: PARKINSON^S DISEASE
     Dosage: UNK
  4. NEURONTIN [Suspect]
     Indication: DEMENTIA
  5. GABAPENTIN [Suspect]
     Dosage: UNK
  6. CARBIDOPA/LEVODOPA [Concomitant]
     Indication: PARKINSON^S DISEASE
     Dosage: CARVIDOPA 25MG/ LEVODOPA 100MG, 4XDAY
  7. CARBIDOPA/LEVODOPA [Concomitant]
     Indication: PARKINSON^S DISEASE
     Dosage: CARVIDOPA 50MG/ LEVODOPA 200MG, 4XDAY
  8. CLOZARIL [Concomitant]
     Indication: PARKINSON^S DISEASE
     Dosage: 25 MG, DAILY AT BED TIME

REACTIONS (1)
  - Skin odour abnormal [Not Recovered/Not Resolved]
